FAERS Safety Report 6105850-1 (Version None)
Quarter: 2009Q1

REPORT INFORMATION
  Report Type: 
  Country: None (occurrence: None)
  Receive Date: 20090306
  Receipt Date: 20090227
  Transmission Date: 20090719
  Serious: Yes (Hospitalization, Other)
  Sender: FDA-Public Use
  Company Number: US-MERCK-0608USA04371

PATIENT
  Age: 78 Year
  Sex: Female

DRUGS (10)
  1. FOSAMAX [Suspect]
     Indication: BONE DISORDER
     Route: 048
     Dates: start: 20020601, end: 20060301
  2. FOSAMAX [Suspect]
     Route: 048
     Dates: start: 20060301, end: 20060801
  3. FOSAMAX [Suspect]
     Route: 048
     Dates: start: 20000101, end: 20000901
  4. FOSAMAX [Suspect]
     Route: 048
     Dates: start: 19980101
  5. FOSAMAX [Suspect]
     Indication: OSTEOPOROSIS PROPHYLAXIS
     Route: 048
     Dates: start: 20020601, end: 20060301
  6. FOSAMAX [Suspect]
     Route: 048
     Dates: start: 20060301, end: 20060801
  7. FOSAMAX [Suspect]
     Route: 048
     Dates: start: 20000101, end: 20000901
  8. FOSAMAX [Suspect]
     Route: 048
     Dates: start: 19980101
  9. IBUPROFEN [Concomitant]
     Route: 065
  10. LASIX [Concomitant]
     Indication: POLYURIA
     Route: 065
     Dates: start: 20000101

REACTIONS (13)
  - BLINDNESS UNILATERAL [None]
  - BREAST DISORDER [None]
  - CATARACT [None]
  - CELLULITIS [None]
  - FALL [None]
  - HYPERSENSITIVITY [None]
  - INFECTION [None]
  - OSTEONECROSIS [None]
  - PATELLA FRACTURE [None]
  - RADICULOPATHY [None]
  - SKIN LACERATION [None]
  - TOOTHACHE [None]
  - VENOUS INSUFFICIENCY [None]
